FAERS Safety Report 20401862 (Version 2)
Quarter: 2022Q1

REPORT INFORMATION
  Report Type: Spontaneous
  Country: US (occurrence: US)
  Receive Date: 20220131
  Receipt Date: 20220201
  Transmission Date: 20220424
  Serious: No
  Sender: FDA-Public Use
  Company Number: US-ABBVIE-21K-163-4120930-00

PATIENT
  Sex: Female
  Weight: 54.480 kg

DRUGS (9)
  1. HUMIRA [Suspect]
     Active Substance: ADALIMUMAB
     Indication: Rheumatoid arthritis
     Route: 058
     Dates: start: 202006, end: 202105
  2. HUMIRA [Suspect]
     Active Substance: ADALIMUMAB
     Route: 058
     Dates: start: 20211003
  3. PFIZER-BIONTECH COVID-19 VACCINE [Suspect]
     Active Substance: TOZINAMERAN
     Indication: COVID-19 immunisation
     Dosage: PFIZER
     Route: 030
     Dates: start: 20210310, end: 20210310
  4. PFIZER-BIONTECH COVID-19 VACCINE [Suspect]
     Active Substance: TOZINAMERAN
     Dosage: PFIZER
     Route: 030
     Dates: start: 20210331, end: 20210331
  5. PFIZER-BIONTECH COVID-19 VACCINE [Suspect]
     Active Substance: TOZINAMERAN
     Dosage: PFIZER
     Route: 030
     Dates: start: 20210827, end: 20210827
  6. ENBREL [Suspect]
     Active Substance: ETANERCEPT
     Indication: Product used for unknown indication
     Route: 065
     Dates: start: 20210502
  7. METHOTREXATE [Concomitant]
     Active Substance: METHOTREXATE
     Indication: Rheumatoid arthritis
  8. FOLIC ACID [Concomitant]
     Active Substance: FOLIC ACID
     Indication: Rheumatoid arthritis
  9. SYNTHROID [Concomitant]
     Active Substance: LEVOTHYROXINE SODIUM
     Indication: Hypothyroidism

REACTIONS (4)
  - Injection site pain [Unknown]
  - Rheumatoid arthritis [Recovering/Resolving]
  - Device difficult to use [Unknown]
  - Device issue [Unknown]

NARRATIVE: CASE EVENT DATE: 20210101
